FAERS Safety Report 8607354 (Version 2)
Quarter: 2013Q2

REPORT INFORMATION
  Report Type: Spontaneous
  Country: US (occurrence: US)
  Receive Date: 20120611
  Receipt Date: 20130617
  Transmission Date: 20140414
  Serious: Yes (Hospitalization, Disabling, Other)
  Sender: FDA-Public Use
  Company Number: US-ASTRAZENECA-2012SE34839

PATIENT
  Age: 21008 Day
  Sex: Female
  Weight: 67.6 kg

DRUGS (23)
  1. NEXIUM [Suspect]
     Indication: GASTRIC DISORDER
     Route: 048
  2. NEXIUM [Suspect]
     Indication: GASTRIC DISORDER
     Route: 048
     Dates: start: 20030509
  3. PRILOSEC [Suspect]
     Route: 048
  4. PROTONIX [Concomitant]
  5. PREVACID [Concomitant]
  6. ZANTAC [Concomitant]
  7. TAGAMET [Concomitant]
  8. CLONAZEPAM [Concomitant]
     Dates: start: 20030320
  9. AMBIEN [Concomitant]
     Dates: start: 20030403
  10. CELEBREX [Concomitant]
  11. AMITRIPTYLINE HCL [Concomitant]
     Dates: start: 20030425
  12. PRAVASTATIN SODIUM [Concomitant]
     Dosage: 30 PILL
  13. TIZANIDINE HCL [Concomitant]
     Dosage: 3 TIMES DAILY
  14. TIZANIDINE HCL [Concomitant]
     Dates: start: 20030314
  15. CYMBALTA [Concomitant]
  16. PROMETHAZINE [Concomitant]
  17. MORPHINE [Concomitant]
  18. METOPROLOL [Concomitant]
     Dosage: 60 PILLS TWO TIMES DAILY
  19. FUROSEMIDE [Concomitant]
     Dates: start: 20030307
  20. XENICAL [Concomitant]
     Dates: start: 20030307
  21. ZYPREXA [Concomitant]
     Dates: start: 20030404
  22. NYSTATIN/TRIAMCINO [Concomitant]
     Dates: start: 20030320
  23. HYDROCODONE/APAP [Concomitant]
     Dates: start: 20030404

REACTIONS (18)
  - Lung disorder [Unknown]
  - Multiple fractures [Unknown]
  - Bone disorder [Unknown]
  - Neck injury [Unknown]
  - Pulmonary oedema [Unknown]
  - Osteoporosis [Unknown]
  - Bone density decreased [Unknown]
  - Intervertebral disc degeneration [Unknown]
  - Osteogenesis imperfecta [Unknown]
  - Arthritis [Unknown]
  - Bone pain [Unknown]
  - Chronic obstructive pulmonary disease [Unknown]
  - Diabetes mellitus [Unknown]
  - Peripheral vascular disorder [Unknown]
  - Rheumatoid arthritis [Unknown]
  - Vitamin D deficiency [Unknown]
  - Fall [Unknown]
  - Depression [Unknown]
